FAERS Safety Report 9181093 (Version 2)
Quarter: 2013Q1

REPORT INFORMATION
  Report Type: Spontaneous
  Country: US (occurrence: US)
  Receive Date: 20130322
  Receipt Date: 20130322
  Transmission Date: 20140127
  Serious: No
  Sender: FDA-Public Use
  Company Number: US-MYLANLABS-2012S1004256

PATIENT
  Age: 56 Year
  Sex: Female

DRUGS (11)
  1. EMSAM [Suspect]
     Indication: DEPRESSION
     Dosage: Q 24 HOUR
     Route: 062
     Dates: start: 201201
  2. EMSAM [Suspect]
     Indication: SOCIAL PHOBIA
     Dosage: Q 24 HOUR
     Route: 062
     Dates: start: 201201
  3. LAMOTRIGINE [Concomitant]
  4. VALTREX [Concomitant]
  5. MULTI-VIT [Concomitant]
  6. XANAX [Concomitant]
  7. AMBIEN [Concomitant]
  8. CALCIUM [Concomitant]
  9. COLOSTRUM [Concomitant]
  10. MOVE FREE [Concomitant]
  11. VITAMIN D [Concomitant]

REACTIONS (2)
  - Application site rash [Not Recovered/Not Resolved]
  - Application site pruritus [Not Recovered/Not Resolved]
